FAERS Safety Report 17947990 (Version 1)
Quarter: 2020Q2

REPORT INFORMATION
  Report Type: Spontaneous
  Country: US (occurrence: US)
  Receive Date: 20200625
  Receipt Date: 20200625
  Transmission Date: 20200714
  Serious: No
  Sender: FDA-Public Use
  Company Number: None

PATIENT
  Age: 50 Year
  Sex: Female

DRUGS (1)
  1. HUMIRA [Suspect]
     Active Substance: ADALIMUMAB
     Indication: PRODUCT USED FOR UNKNOWN INDICATION
     Dosage: OTHER FREQUENCY:Q2WK;?
     Route: 058
     Dates: start: 20190601

REACTIONS (2)
  - Condition aggravated [None]
  - Medical procedure [None]

NARRATIVE: CASE EVENT DATE: 20200608
